FAERS Safety Report 5774024-6 (Version None)
Quarter: 2008Q2

REPORT INFORMATION
  Report Type: 
  Country: None (occurrence: None)
  Receive Date: 20080616
  Receipt Date: 20080604
  Transmission Date: 20081010
  Serious: Yes (Disabling)
  Sender: FDA-Public Use
  Company Number: IT-ROCHE-568428

PATIENT
  Sex: Female

DRUGS (3)
  1. XELODA [Suspect]
     Indication: BREAST CANCER
     Route: 048
     Dates: start: 20080108, end: 20080331
  2. XELODA [Suspect]
     Dosage: DOSE DECREASED
     Route: 048
  3. LAPATINIB [Concomitant]
     Indication: BREAST CANCER
     Route: 048
     Dates: start: 20080108, end: 20080331

REACTIONS (3)
  - FLUID RETENTION [None]
  - SECRETION DISCHARGE [None]
  - SKIN LACERATION [None]
